FAERS Safety Report 7720779-0 (Version None)
Quarter: 2011Q3

REPORT INFORMATION
  Report Type: 
  Country: None (occurrence: None)
  Receive Date: 20110831
  Receipt Date: 20110820
  Transmission Date: 20111222
  Serious: Yes (Other)
  Sender: FDA-Public Use
  Company Number: US-JNJFOC-20110602101

PATIENT
  Sex: Female
  Weight: 63 kg

DRUGS (2)
  1. REMICADE [Suspect]
     Route: 042
     Dates: start: 20110527
  2. REMICADE [Suspect]
     Indication: CROHN'S DISEASE
     Route: 042
     Dates: start: 20110513

REACTIONS (8)
  - DYSPNOEA [None]
  - INFUSION RELATED REACTION [None]
  - CHEST DISCOMFORT [None]
  - ERYTHEMA [None]
  - FIBROMYALGIA [None]
  - ANXIETY [None]
  - TACHYCARDIA [None]
  - FLUSHING [None]
